FAERS Safety Report 9320228 (Version 2)
Quarter: 2013Q2

REPORT INFORMATION
  Report Type: Other
  Country: GB (occurrence: GB)
  Receive Date: 20130530
  Receipt Date: 20130530
  Transmission Date: 20140414
  Serious: Yes (Congenital Anomaly)
  Sender: FDA-Public Use
  Company Number: GB-ACTAVIS-2011A-00277

PATIENT
  Age: 1 Month
  Sex: Female
  Weight: 3.46 kg

DRUGS (6)
  1. OMEPRAZOLE (UNKNOWN) [Suspect]
     Indication: PROPHYLAXIS AGAINST GASTROINTESTINAL ULCER
     Dosage: 20MG DAILY
     Route: 064
     Dates: start: 20081016
  2. OMEPRAZOLE (UNKNOWN) [Suspect]
     Indication: PROPHYLAXIS AGAINST GASTROINTESTINAL ULCER
  3. ACETAMINOPHEN-CODEINE PHOSPHATE (UNKNOWN) (ACETAMINOPHE, CODEINE PHOSPHATE) UNK, UNKUNK [Suspect]
     Indication: PAIN
     Dosage: 2DF, 30/500, 2 TABLETS AS NEEDED.
     Route: 064
     Dates: start: 20090106
  4. HYDROXOCOBALAMIN (WATSON LABORATORIES) [Suspect]
     Indication: VITAMIN B12 DEFICIENCY
     Dosage: 3DF EVERY MONTH
     Route: 064
     Dates: start: 20091216
  5. FOLIC ACID (WATSON LABORATORIES) [Suspect]
     Indication: PREGNANCY
     Dosage: 1DF ONCE DAILY
     Route: 064
     Dates: start: 200905
  6. LYRICA [Suspect]
     Indication: PAIN
     Dosage: 2DF, TWICE A DAY
     Route: 064
     Dates: start: 20080815

REACTIONS (5)
  - Foetal exposure during pregnancy [Recovered/Resolved]
  - Pelvic deformity [Unknown]
  - Developmental hip dysplasia [Unknown]
  - Developmental hip dysplasia [None]
  - Forceps delivery [None]
